FAERS Safety Report 21798140 (Version 1)
Quarter: 2022Q4

REPORT INFORMATION
  Report Type: Report from Study
  Country: US (occurrence: US)
  Receive Date: 20221230
  Receipt Date: 20221230
  Transmission Date: 20230112
  Serious: Yes (Life-Threatening, Other)
  Sender: FDA-Public Use
  Company Number: US-BEH-2022153627

PATIENT
  Age: 57 Year
  Sex: Female

DRUGS (1)
  1. PRIVIGEN [Suspect]
     Active Substance: HUMAN IMMUNOGLOBULIN G
     Indication: Dermatomyositis
     Dosage: UNK
     Route: 042
     Dates: start: 201710, end: 201904

REACTIONS (25)
  - Vein rupture [Unknown]
  - Drug ineffective for unapproved indication [Unknown]
  - Pain [Unknown]
  - Contusion [Unknown]
  - Drug intolerance [Unknown]
  - Chills [Unknown]
  - Pyrexia [Unknown]
  - Headache [Unknown]
  - Nausea [Unknown]
  - Fatigue [Unknown]
  - Malaise [Unknown]
  - Palpitations [Unknown]
  - Tachycardia [Unknown]
  - Meningitis aseptic [Unknown]
  - Blood pressure increased [Unknown]
  - Feeling abnormal [Unknown]
  - Anaphylactic reaction [Unknown]
  - Swelling face [Unknown]
  - Swollen tongue [Unknown]
  - Dysphagia [Unknown]
  - Chest discomfort [Unknown]
  - Painful respiration [Unknown]
  - Dyspnoea [Unknown]
  - No adverse event [Unknown]
  - Off label use [Unknown]
